FAERS Safety Report 8267662-2 (Version None)
Quarter: 2012Q2

REPORT INFORMATION
  Report Type: 
  Country: None (occurrence: None)
  Receive Date: 20120409
  Receipt Date: 20120402
  Transmission Date: 20120825
  Serious: Yes (Hospitalization, Other)
  Sender: FDA-Public Use
  Company Number: FR-PFIZER INC-2012083472

PATIENT
  Age: 79 Year
  Sex: Female

DRUGS (6)
  1. ASPIRIN [Concomitant]
  2. ATORVASTATIN [Suspect]
     Dosage: 10 MG, 1X/DAY
     Route: 048
     Dates: end: 20120211
  3. TAMSULOSIN HCL [Concomitant]
  4. DEDROGYL [Concomitant]
  5. TRAMADOL HCL [Concomitant]
  6. POLYETHYLENE GLYCOL [Concomitant]

REACTIONS (4)
  - FALL [None]
  - CONFUSIONAL STATE [None]
  - TROPONIN INCREASED [None]
  - BLOOD CREATINE PHOSPHOKINASE INCREASED [None]
